FAERS Safety Report 8024098-7 (Version None)
Quarter: 2011Q4

REPORT INFORMATION
  Report Type: 
  Country: None (occurrence: None)
  Receive Date: 20111130
  Receipt Date: 20101111
  Transmission Date: 20120403
  Serious: Yes (Hospitalization, Other)
  Sender: FDA-Public Use
  Company Number: 316686

PATIENT
  Age: 40 Year
  Sex: Male
  Weight: 113.4 kg

DRUGS (3)
  1. LANTUS [Concomitant]
  2. NOVOLOG [Suspect]
     Indication: TYPE 2 DIABETES MELLITUS
     Dosage: SLIDING SCALE, SUBCUTANEOUS
     Route: 058
     Dates: start: 20080101
  3. ZESTRIL [Concomitant]

REACTIONS (4)
  - BLOOD GLUCOSE INCREASED [None]
  - ABDOMINAL PAIN [None]
  - HEADACHE [None]
  - NAUSEA [None]
